FAERS Safety Report 13566741 (Version 2)
Quarter: 2017Q2

REPORT INFORMATION
  Report Type: Report from Study
  Country: US (occurrence: US)
  Receive Date: 20170522
  Receipt Date: 20170529
  Transmission Date: 20170830
  Serious: Yes (Other)
  Sender: FDA-Public Use
  Company Number: PHEH2017US015170

PATIENT
  Age: 42 Year
  Sex: Female
  Weight: 83.45 kg

DRUGS (1)
  1. GILENYA [Suspect]
     Active Substance: FINGOLIMOD HYDROCHLORIDE
     Indication: MULTIPLE SCLEROSIS
     Dosage: 0.5 MG, QD
     Route: 048
     Dates: start: 20150128, end: 20170409

REACTIONS (2)
  - White blood cell count decreased [Unknown]
  - Lymphocyte count decreased [Recovering/Resolving]

NARRATIVE: CASE EVENT DATE: 20170409
